FAERS Safety Report 11604622 (Version 3)
Quarter: 2015Q4

REPORT INFORMATION
  Report Type: Report from Study
  Country: US (occurrence: US)
  Receive Date: 20151007
  Receipt Date: 20151126
  Transmission Date: 20160304
  Serious: Yes (Other)
  Sender: FDA-Public Use
  Company Number: US-BIOGENIDEC-2015BI035615

PATIENT
  Age: 34 Year
  Sex: Female

DRUGS (5)
  1. XANAX [Concomitant]
     Active Substance: ALPRAZOLAM
  2. VALIUM [Concomitant]
     Active Substance: DIAZEPAM
  3. LEXAPRO [Concomitant]
     Active Substance: ESCITALOPRAM OXALATE
  4. TECFIDERA [Suspect]
     Active Substance: DIMETHYL FUMARATE
     Indication: RELAPSING-REMITTING MULTIPLE SCLEROSIS
     Route: 048
     Dates: start: 20140512, end: 20150306
  5. SYNTHROID [Concomitant]
     Active Substance: LEVOTHYROXINE SODIUM

REACTIONS (2)
  - Maternal exposure during pregnancy [Recovered/Resolved]
  - Caesarean section [Recovered/Resolved]

NARRATIVE: CASE EVENT DATE: 20150124
